FAERS Safety Report 20858013 (Version 1)
Quarter: 2022Q2

REPORT INFORMATION
  Report Type: Spontaneous
  Country: IR (occurrence: IR)
  Receive Date: 20220521
  Receipt Date: 20220521
  Transmission Date: 20220720
  Serious: Yes (Death, Life-Threatening, Hospitalization, Other)
  Sender: FDA-Public Use
  Company Number: IR-USP-004735

PATIENT
  Age: 60 Year
  Sex: Female

DRUGS (2)
  1. AMPHETAMINE [Suspect]
     Active Substance: AMPHETAMINE
     Indication: Product used for unknown indication
     Route: 065
  2. ALPRAZOLAM [Suspect]
     Active Substance: ALPRAZOLAM
     Indication: Product used for unknown indication
     Route: 065

REACTIONS (12)
  - Gastric perforation [Fatal]
  - Suicide attempt [Unknown]
  - Toxicity to various agents [Fatal]
  - Drug abuse [Fatal]
  - Cytomegalovirus gastritis [Fatal]
  - Overdose [Unknown]
  - Cholecystitis [Unknown]
  - Mucosal necrosis [Unknown]
  - Peritonitis [Recovered/Resolved]
  - Cardiac arrest [Fatal]
  - Respiratory arrest [Fatal]
  - Metabolic encephalopathy [Fatal]
